FAERS Safety Report 6823052-8 (Version None)
Quarter: 2010Q3

REPORT INFORMATION
  Report Type: 
  Country: None (occurrence: None)
  Receive Date: 20100708
  Receipt Date: 20100705
  Transmission Date: 20110219
  Serious: Yes (Hospitalization)
  Sender: FDA-Public Use
  Company Number: B0663548A

PATIENT
  Sex: Female

DRUGS (11)
  1. ARIXTRA [Suspect]
     Indication: THROMBOSIS PROPHYLAXIS
     Dosage: 2.5MG PER DAY
     Route: 058
     Dates: start: 20100429, end: 20100511
  2. DAFALGAN [Concomitant]
     Dosage: 2UNIT THREE TIMES PER DAY
     Route: 065
  3. DEPAMIDE [Concomitant]
     Dosage: 300MG THREE TIMES PER DAY
     Route: 065
  4. IMODIUM [Concomitant]
     Route: 065
  5. IMOVANE [Concomitant]
     Route: 065
  6. PARIET [Concomitant]
     Route: 065
  7. RISPERDAL [Concomitant]
     Dosage: 1MG THREE TIMES PER DAY
     Route: 065
  8. RIVOTRIL [Concomitant]
     Dosage: 5DROP PER DAY
     Route: 065
  9. SERESTA [Concomitant]
     Dosage: 10MG AS REQUIRED
     Route: 065
  10. ROCEPHIN [Concomitant]
     Dosage: 1G UNKNOWN
     Route: 058
     Dates: start: 20100429
  11. CLAMOXYL [Concomitant]
     Dosage: 1G THREE TIMES PER DAY
     Route: 065
     Dates: end: 20100511

REACTIONS (3)
  - ANAEMIA [None]
  - DRUG ADMINISTERED AT INAPPROPRIATE SITE [None]
  - INJECTION SITE HAEMATOMA [None]
